FAERS Safety Report 25330981 (Version 4)
Quarter: 2025Q3

REPORT INFORMATION
  Report Type: Report from Study
  Country: US (occurrence: US)
  Receive Date: 20250519
  Receipt Date: 20250723
  Transmission Date: 20251020
  Serious: Yes (Other)
  Sender: TAKEDA
  Company Number: US-TAKEDA-2024TUS045842

PATIENT
  Sex: Female
  Weight: 77 kg

DRUGS (14)
  1. HUMAN IMMUNOGLOBULIN G [Suspect]
     Active Substance: HUMAN IMMUNOGLOBULIN G
     Indication: Polymyositis
  2. HUMAN IMMUNOGLOBULIN G [Suspect]
     Active Substance: HUMAN IMMUNOGLOBULIN G
     Dosage: 50 GRAM, Q3WEEKS
  3. ACETAMINOPHEN [Concomitant]
     Active Substance: ACETAMINOPHEN
  4. AZATHIOPRINE [Concomitant]
     Active Substance: AZATHIOPRINE
  5. HEPARIN [Concomitant]
     Active Substance: HEPARIN SODIUM
  6. SODIUM CHLORIDE [Concomitant]
     Active Substance: SODIUM CHLORIDE
  7. CYANOCOBALAMIN [Concomitant]
     Active Substance: CYANOCOBALAMIN
  8. LIDOCAINE [Concomitant]
     Active Substance: LIDOCAINE
  9. PREDNISONE [Concomitant]
     Active Substance: PREDNISONE
  10. DIPHENHYDRAMINE HYDROCHLORIDE [Concomitant]
     Active Substance: DIPHENHYDRAMINE HYDROCHLORIDE
  11. EPINEPHRINE [Concomitant]
     Active Substance: EPINEPHRINE
  12. VITAMIN D [Concomitant]
     Active Substance: VITAMIN D NOS
  13. ADVIL [Concomitant]
     Active Substance: IBUPROFEN
  14. IBUPROFEN [Concomitant]
     Active Substance: IBUPROFEN

REACTIONS (18)
  - Abortion spontaneous [Recovered/Resolved]
  - Nasopharyngitis [Unknown]
  - Product contamination physical [Unknown]
  - Infusion related reaction [Unknown]
  - General physical health deterioration [Unknown]
  - Product prescribing issue [Unknown]
  - Inappropriate schedule of product administration [Unknown]
  - Pregnancy [Recovered/Resolved]
  - Catheter site pain [Unknown]
  - Choking sensation [Unknown]
  - Cough [Recovered/Resolved]
  - Back pain [Unknown]
  - Pruritus [Unknown]
  - Abdominal pain [Unknown]
  - Urticaria [Recovering/Resolving]
  - Headache [Recovering/Resolving]
  - Dizziness [Unknown]
  - Dyspnoea [Unknown]
